FAERS Safety Report 4303930-4 (Version None)
Quarter: 2004Q1

REPORT INFORMATION
  Report Type: 
  Country: None (occurrence: None)
  Receive Date: 20040223
  Receipt Date: 20031121
  Transmission Date: 20041129
  Serious: No
  Sender: FDA-Public Use
  Company Number: PHEH2003US10763

PATIENT
  Age: 40 Year
  Sex: Female

DRUGS (5)
  1. ZELNORM [Suspect]
     Indication: IRRITABLE BOWEL SYNDROME
     Dosage: 6 MG, BID; 6 MG, QD, ORAL
     Route: 048
     Dates: start: 20031018, end: 20031118
  2. ZELNORM [Suspect]
     Indication: IRRITABLE BOWEL SYNDROME
     Dosage: 6 MG, BID; 6 MG, QD, ORAL
     Route: 048
     Dates: start: 20031119
  3. ZYRTEC [Concomitant]
  4. ACETYLSALICYLATE [Concomitant]
  5. VITAMINS NOS (VITAMINS NOS) [Concomitant]

REACTIONS (2)
  - ABNORMAL FAECES [None]
  - FLATULENCE [None]
